FAERS Safety Report 5566606-1 (Version None)
Quarter: 2007Q4

REPORT INFORMATION
  Report Type: 
  Country: None (occurrence: None)
  Receive Date: 20071219
  Receipt Date: 20071207
  Transmission Date: 20080405
  Serious: Yes (Hospitalization)
  Sender: FDA-Public Use
  Company Number: CA-ELI_LILLY_AND_COMPANY-CA200712001877

PATIENT
  Age: 86 Year
  Sex: Female

DRUGS (9)
  1. FORTEO [Suspect]
     Indication: OSTEOPOROSIS
     Dosage: 20 UG, DAILY (1/D)
     Route: 058
     Dates: start: 20060906
  2. IMDUR [Concomitant]
  3. EFFEXOR [Concomitant]
  4. SENOKOT [Concomitant]
  5. SYNTHROID [Concomitant]
  6. APO-AMITRIPTYLINE [Concomitant]
  7. DURAGESIC-100 [Concomitant]
  8. TYLENOL                                 /SCH/ [Concomitant]
     Dosage: UNK, AS NEEDED
  9. DILAUDID [Concomitant]
     Dosage: UNK, AS NEEDED

REACTIONS (3)
  - ABDOMINAL PAIN [None]
  - CONSTIPATION [None]
  - FATIGUE [None]
